FAERS Safety Report 13344446 (Version 8)
Quarter: 2020Q3

REPORT INFORMATION
  Report Type: Report from Study
  Country: CN (occurrence: CN)
  Receive Date: 20170317
  Receipt Date: 20180731
  Transmission Date: 20201105
  Serious: Yes (Hospitalization)
  Sender: FDA-Public Use
  Company Number: CN-ROCHE-1903883

PATIENT
  Age: 64 Year
  Sex: Female
  Weight: 48 kg

DRUGS (43)
  1. ALECTINIB. [Suspect]
     Active Substance: ALECTINIB
     Indication: NON-SMALL CELL LUNG CANCER
     Dosage: DATE OF MOST RECENT DOSE PRIOR TO EVENT (ACUTE RENAL FAILURE) ONSET: 07/MAR/2017 (600MG)?DATE OF MOS
     Route: 048
     Dates: start: 20170208
  2. METFORMIN HYDROCHLORIDE. [Concomitant]
     Active Substance: METFORMIN HYDROCHLORIDE
     Indication: DIABETES MELLITUS
     Route: 065
     Dates: start: 20170109, end: 20170207
  3. ZOLEDRONIC ACID [Concomitant]
     Active Substance: ZOLEDRONIC ACID
     Route: 065
     Dates: start: 20171111, end: 20171111
  4. LACTULOSE. [Concomitant]
     Active Substance: LACTULOSE
     Indication: CONSTIPATION
     Route: 048
     Dates: start: 20170214, end: 20170220
  5. GLYCERINE [Concomitant]
     Active Substance: GLYCERIN
     Route: 050
     Dates: start: 20170324, end: 20170421
  6. ALECTINIB. [Suspect]
     Active Substance: ALECTINIB
     Dosage: REDUCED DOSE FOLLOWING ANAEMIA
     Route: 048
     Dates: start: 20171123
  7. METFORMIN HYDROCHLORIDE. [Concomitant]
     Active Substance: METFORMIN HYDROCHLORIDE
     Indication: HYPOGLYCAEMIA
  8. GLUTATHIONE [Concomitant]
     Active Substance: GLUTATHIONE
     Dosage: REDUCED GLUTATHIONE FOR INJECTION
     Route: 065
     Dates: start: 20170307, end: 20170314
  9. LOW MOLECULAR WEIGHT HEPARINS [Concomitant]
     Active Substance: UNSPECIFIED INGREDIENT
     Route: 065
     Dates: start: 20170308, end: 20170308
  10. POLYENE PHOSPHATIDYLCHOLINE [Concomitant]
     Active Substance: PHOSPHOLIPID
     Route: 065
     Dates: start: 20170307, end: 20170322
  11. ZOLEDRONIC ACID [Concomitant]
     Active Substance: ZOLEDRONIC ACID
     Route: 065
     Dates: start: 20170501, end: 20170501
  12. ADEMETIONINE 1,4?BUTANEDISULFONATE [Concomitant]
     Indication: CHOLESTASIS
     Route: 065
     Dates: start: 20170602, end: 20180109
  13. NIFEDIPINE. [Concomitant]
     Active Substance: NIFEDIPINE
     Indication: HYPERTENSION
     Dosage: DOSE: 300 MG EVERY DAY
     Route: 065
     Dates: start: 20170109
  14. ROSUVASTATIN CALCIUM. [Concomitant]
     Active Substance: ROSUVASTATIN CALCIUM
     Indication: CEREBRAL INFARCTION
     Dosage: DOSE: 10 MG EVERY DAY
     Route: 065
     Dates: start: 20170209
  15. POTASSIUM CHLORIDE. [Concomitant]
     Active Substance: POTASSIUM CHLORIDE
     Route: 065
     Dates: start: 20170630, end: 20170831
  16. INSULIN ASPART [Concomitant]
     Active Substance: INSULIN ASPART
     Indication: BLOOD GLUCOSE
     Route: 065
     Dates: start: 20170307, end: 20170314
  17. POTASSIUM CHLORIDE. [Concomitant]
     Active Substance: POTASSIUM CHLORIDE
     Indication: HYPOKALAEMIA
     Route: 065
     Dates: start: 20170308, end: 20170308
  18. ZOLEDRONIC ACID [Concomitant]
     Active Substance: ZOLEDRONIC ACID
     Route: 065
     Dates: start: 20170913, end: 20170913
  19. CEFMETAZOLE SODIUM [Concomitant]
     Active Substance: CEFMETAZOLE SODIUM
     Route: 065
     Dates: start: 20170713, end: 20170715
  20. NATEGLINIDE. [Concomitant]
     Active Substance: NATEGLINIDE
     Indication: DIABETES MELLITUS
     Route: 065
     Dates: start: 20170109
  21. NATEGLINIDE. [Concomitant]
     Active Substance: NATEGLINIDE
     Indication: HYPOGLYCAEMIA
  22. POTASSIUM CHLORIDE. [Concomitant]
     Active Substance: POTASSIUM CHLORIDE
     Route: 065
     Dates: start: 20170308, end: 20170308
  23. DIAMMONIUM GLYCYRRHIZINATE [Concomitant]
     Active Substance: HERBALS\DIAMMONIUM GLYCYRRHIZINATE
     Indication: LIVER INJURY
     Route: 065
     Dates: start: 20170322, end: 20170404
  24. ZOLEDRONIC ACID [Concomitant]
     Active Substance: ZOLEDRONIC ACID
     Indication: METASTASES TO BONE
     Route: 065
     Dates: start: 20170408, end: 20170408
  25. ZOLEDRONIC ACID [Concomitant]
     Active Substance: ZOLEDRONIC ACID
     Route: 065
     Dates: start: 20171209, end: 20171209
  26. ZOLEDRONIC ACID [Concomitant]
     Active Substance: ZOLEDRONIC ACID
     Route: 065
     Dates: start: 20180105, end: 20180105
  27. NIFEDIPINE. [Concomitant]
     Active Substance: NIFEDIPINE
     Indication: HYPOGLYCAEMIA
  28. ASPIRIN. [Concomitant]
     Active Substance: ASPIRIN
     Indication: CEREBRAL INFARCTION
     Dosage: DOSE: 10 MG EVERY DAY
     Route: 065
     Dates: start: 201606
  29. FUROSEMIDE. [Concomitant]
     Active Substance: FUROSEMIDE
     Route: 065
     Dates: start: 20170307, end: 20170307
  30. IRON PROTEINSUCCINYLATE [Concomitant]
     Route: 048
     Dates: start: 20170310, end: 20170317
  31. ZOLEDRONIC ACID [Concomitant]
     Active Substance: ZOLEDRONIC ACID
     Route: 065
     Dates: start: 20170707, end: 20170707
  32. GLYCERINE [Concomitant]
     Active Substance: GLYCERIN
     Route: 050
     Dates: start: 20170216, end: 20170218
  33. ALECTINIB. [Suspect]
     Active Substance: ALECTINIB
     Dosage: REDUCED DOSE DUE TO ACUTE RENAL FAILURE
     Route: 048
     Dates: start: 20170314
  34. POTASSIUM CHLORIDE. [Concomitant]
     Active Substance: POTASSIUM CHLORIDE
     Route: 065
     Dates: start: 20170901
  35. POTASSIUM CHLORIDE. [Concomitant]
     Active Substance: POTASSIUM CHLORIDE
     Route: 065
     Dates: start: 20171114, end: 20171115
  36. CALCIUM CARBONATE/CHOLECALCIFEROL [Concomitant]
     Active Substance: CALCIUM CARBONATE\CHOLECALCIFEROL
     Route: 065
     Dates: start: 20170310, end: 20170321
  37. ACARBOSE. [Concomitant]
     Active Substance: ACARBOSE
     Indication: BLOOD GLUCOSE
     Route: 065
     Dates: start: 20170312, end: 20170322
  38. POTASSIUM CHLORIDE. [Concomitant]
     Active Substance: POTASSIUM CHLORIDE
     Route: 065
     Dates: start: 20170602, end: 20170606
  39. SODIUM BICARBONATE. [Concomitant]
     Active Substance: SODIUM BICARBONATE
     Route: 065
     Dates: start: 20170307, end: 20170321
  40. DIAMMONIUM GLYCYRRHIZINATE [Concomitant]
     Active Substance: HERBALS\DIAMMONIUM GLYCYRRHIZINATE
     Route: 065
     Dates: start: 20170408, end: 20180109
  41. ZOLEDRONIC ACID [Concomitant]
     Active Substance: ZOLEDRONIC ACID
     Route: 065
     Dates: start: 20170519, end: 20170519
  42. ZOLEDRONIC ACID [Concomitant]
     Active Substance: ZOLEDRONIC ACID
     Route: 065
     Dates: start: 20170614, end: 20170614
  43. ZOLEDRONIC ACID [Concomitant]
     Active Substance: ZOLEDRONIC ACID
     Route: 065
     Dates: start: 20171019, end: 20171019

REACTIONS (2)
  - Anaemia [Recovered/Resolved]
  - Acute kidney injury [Recovered/Resolved]

NARRATIVE: CASE EVENT DATE: 20170307
